FAERS Safety Report 5411914-8 (Version None)
Quarter: 2007Q3

REPORT INFORMATION
  Report Type: 
  Country: None (occurrence: None)
  Receive Date: 20070810
  Receipt Date: 20070810
  Transmission Date: 20080115
  Serious: No
  Sender: FDA-Public Use
  Company Number: None

PATIENT
  Sex: Female

DRUGS (4)
  1. OXYCONTIN [Suspect]
     Indication: BACK PAIN
     Dosage: ONE TIME BID PO
     Route: 048
     Dates: start: 20050101, end: 20070601
  2. OXYCONTIN [Suspect]
     Indication: FIBROMYALGIA
     Dosage: ONE TIME BID PO
     Route: 048
     Dates: start: 20050101, end: 20070601
  3. OXYCONTIN [Suspect]
     Indication: INTERVERTEBRAL DISC DEGENERATION
     Dosage: ONE TIME BID PO
     Route: 048
     Dates: start: 20050101, end: 20070601
  4. OXYCONTIN [Suspect]
     Indication: INTERVERTEBRAL DISC PROTRUSION
     Dosage: ONE TIME BID PO
     Route: 048
     Dates: start: 20050101, end: 20070601

REACTIONS (1)
  - REACTION TO DRUG EXCIPIENTS [None]
